FAERS Safety Report 7923214-2 (Version None)
Quarter: 2011Q4

REPORT INFORMATION
  Report Type: 
  Country: None (occurrence: None)
  Receive Date: 20111117
  Receipt Date: 20110131
  Transmission Date: 20120403
  Serious: No
  Sender: FDA-Public Use
  Company Number: US-AMGEN-USASP2011006070

PATIENT
  Age: 63 Year

DRUGS (3)
  1. ENBREL [Suspect]
     Indication: RHEUMATOID ARTHRITIS
     Dosage: 50 MG, QWK
  2. OXYCONTIN [Concomitant]
  3. METHOTREXATE [Concomitant]

REACTIONS (2)
  - GAIT DISTURBANCE [None]
  - ARTHRALGIA [None]
